FAERS Safety Report 9032273 (Version 2)
Quarter: 2013Q1

REPORT INFORMATION
  Report Type: Report from Study
  Country: NZ (occurrence: NZ)
  Receive Date: 20130122
  Receipt Date: 20130228
  Transmission Date: 20140127
  Serious: Yes (Death, Hospitalization, Disabling, Other)
  Sender: FDA-Public Use
  Company Number: PHHY2013NZ005700

PATIENT
  Age: 78 Year
  Sex: Male

DRUGS (4)
  1. CLOZARIL [Suspect]
     Indication: DELUSION
     Dosage: 62.5 MG, UNK
     Route: 048
     Dates: start: 20090713, end: 20121029
  2. CLOZARIL [Suspect]
     Dosage: 37.5 MG, UNK
     Route: 048
     Dates: start: 20121030, end: 20121112
  3. ANTIBIOTICS [Concomitant]
     Indication: LUNG INFECTION
  4. ANTIBIOTICS [Concomitant]
     Indication: INFECTION

REACTIONS (11)
  - Leukaemia [Fatal]
  - Renal failure [Fatal]
  - Blood creatinine increased [Fatal]
  - Infection [Unknown]
  - Pyrexia [Unknown]
  - Chronic obstructive pulmonary disease [Unknown]
  - Dyspnoea [Unknown]
  - Cardiac failure [Unknown]
  - Lung infection [Unknown]
  - Platelet count decreased [Unknown]
  - Haemoglobin decreased [Unknown]
